FAERS Safety Report 4918242-5 (Version None)
Quarter: 2006Q1

REPORT INFORMATION
  Report Type: 
  Country: None (occurrence: None)
  Receive Date: 20060215
  Receipt Date: 20060206
  Transmission Date: 20060701
  Serious: Yes (Hospitalization)
  Sender: FDA-Public Use
  Company Number: 200514558BCC

PATIENT
  Age: 17 Year
  Sex: Male
  Weight: 68.0396 kg

DRUGS (1)
  1. ALEVE [Suspect]
     Indication: INTENTIONAL DRUG MISUSE
     Dosage: 3300 MG, ONCE, ORAL
     Route: 048
     Dates: start: 20051114

REACTIONS (7)
  - BLOOD ELECTROLYTES ABNORMAL [None]
  - DIZZINESS [None]
  - HEADACHE [None]
  - HEPATIC ENZYME INCREASED [None]
  - INTENTIONAL DRUG MISUSE [None]
  - RENAL IMPAIRMENT [None]
  - VOMITING [None]
